FAERS Safety Report 7570950-6 (Version None)
Quarter: 2011Q2

REPORT INFORMATION
  Report Type: 
  Country: None (occurrence: None)
  Receive Date: 20110624
  Receipt Date: 20110620
  Transmission Date: 20111010
  Serious: Yes (Death, Other)
  Sender: FDA-Public Use
  Company Number: GB-ROXANE LABORATORIES, INC.-2011-RO-00848RO

PATIENT
  Age: 81 Month

DRUGS (3)
  1. TREOSULFAN [Suspect]
     Indication: PROPHYLAXIS AGAINST TRANSPLANT REJECTION
  2. CYCLOPHOSPHAMIDE [Suspect]
     Indication: PROPHYLAXIS AGAINST TRANSPLANT REJECTION
  3. CAMPATH [Suspect]

REACTIONS (4)
  - HUMAN HERPESVIRUS 6 INFECTION [None]
  - PNEUMONITIS [None]
  - MULTI-ORGAN FAILURE [None]
  - RENAL FAILURE [None]
